FAERS Safety Report 20217555 (Version 2)
Quarter: 2022Q1

REPORT INFORMATION
  Report Type: Spontaneous
  Country: JP (occurrence: JP)
  Receive Date: 20211222
  Receipt Date: 20220131
  Transmission Date: 20220423
  Serious: Yes (Death, Other)
  Sender: FDA-Public Use
  Company Number: JP-OTSUKA-2021_044565

PATIENT
  Age: 21 Year
  Sex: Female

DRUGS (2)
  1. ABILIFY [Suspect]
     Active Substance: ARIPIPRAZOLE
     Indication: Schizophrenia
     Dosage: UNK
     Route: 048
     Dates: start: 202012, end: 202012
  2. ABILIFY [Suspect]
     Active Substance: ARIPIPRAZOLE
     Indication: Schizophrenia
     Dosage: UNK
     Route: 048
     Dates: start: 202012, end: 202012

REACTIONS (4)
  - Pneumonia [Fatal]
  - Neuroleptic malignant syndrome [Unknown]
  - Dehydration [Unknown]
  - Dizziness [Unknown]
